FAERS Safety Report 11395838 (Version 1)
Quarter: 2015Q3

REPORT INFORMATION
  Report Type: Spontaneous
  Country: US (occurrence: None)
  Receive Date: 20150818
  Receipt Date: 20150818
  Transmission Date: 20151125
  Serious: Yes (Other)
  Sender: FDA-Public Use
  Company Number: None

PATIENT
  Age: 15 Year
  Sex: Male
  Weight: 54.43 kg

DRUGS (2)
  1. GUANFACINO HCL ER 2 MG PER HPARM [Suspect]
     Active Substance: GUANFACINE HYDROCHLORIDE
     Indication: ATTENTION DEFICIT/HYPERACTIVITY DISORDER
     Route: 048
     Dates: start: 20150713, end: 20150802
  2. CITALOPRAM [Concomitant]
     Active Substance: CITALOPRAM HYDROBROMIDE

REACTIONS (15)
  - Phobia [None]
  - Hallucination [None]
  - Photophobia [None]
  - Rash [None]
  - Hypophagia [None]
  - Visual impairment [None]
  - Initial insomnia [None]
  - Insomnia [None]
  - Hyperacusis [None]
  - Product substitution issue [None]
  - Speech disorder [None]
  - Eczema [None]
  - Abnormal behaviour [None]
  - Nightmare [None]
  - Weight decreased [None]

NARRATIVE: CASE EVENT DATE: 20150713
